FAERS Safety Report 5826090-7 (Version None)
Quarter: 2008Q2

REPORT INFORMATION
  Report Type: 
  Country: None (occurrence: None)
  Receive Date: 20080601
  Receipt Date: 20080216
  Transmission Date: 20081010
  Serious: No
  Sender: FDA-Public Use
  Company Number: US200802000955

PATIENT
  Age: 63 Year
  Sex: Female
  Weight: 90.7 kg

DRUGS (11)
  1. BYETTA [Suspect]
     Indication: TYPE 2 DIABETES MELLITUS
     Dosage: 5 UG, 2/D, SUBCUTANEOUS ; 10 UG, 2/D, SUBCUTANEOUS
     Route: 058
     Dates: start: 20060801, end: 20060901
  2. BYETTA [Suspect]
     Indication: TYPE 2 DIABETES MELLITUS
     Dosage: 5 UG, 2/D, SUBCUTANEOUS ; 10 UG, 2/D, SUBCUTANEOUS
     Route: 058
     Dates: start: 20060901
  3. PREVACID [Concomitant]
  4. LEXAPRO [Concomitant]
  5. ASPIRIN [Concomitant]
  6. COZAAR [Concomitant]
  7. CARDIZEM [Concomitant]
  8. HYDRALAZINE HCL [Concomitant]
  9. HYDROCHLOROTHIAZIDE [Concomitant]
  10. SIMVASTATIN [Concomitant]
  11. METFORMIN HCL [Concomitant]

REACTIONS (8)
  - ACCIDENTAL OVERDOSE [None]
  - ANAEMIA [None]
  - BLOOD GLUCOSE DECREASED [None]
  - BLOOD GLUCOSE INCREASED [None]
  - BLOOD PRESSURE INCREASED [None]
  - INCORRECT DOSE ADMINISTERED [None]
  - STRESS [None]
  - WEIGHT DECREASED [None]
